FAERS Safety Report 10439049 (Version 3)
Quarter: 2014Q4

REPORT INFORMATION
  Report Type: Report from Study
  Country: FR (occurrence: FR)
  Receive Date: 20140908
  Receipt Date: 20141029
  Transmission Date: 20150528
  Serious: Yes (Hospitalization)
  Sender: FDA-Public Use
  Company Number: FR-TEVA-507008USA

PATIENT
  Age: 56 Year
  Sex: Male

DRUGS (12)
  1. VELCADE [Suspect]
     Active Substance: BORTEZOMIB
     Indication: PLASMA CELL MYELOMA
     Dosage: UNK UNK, TREATMENT LINE 2, CYCLE 5
     Route: 065
     Dates: start: 20120502, end: 20120530
  2. DEXAMETHASONE. [Suspect]
     Active Substance: DEXAMETHASONE
     Indication: PLASMA CELL MYELOMA
     Dosage: UNK UNK, TREATMENT LINE 3 CYCLE 8
     Route: 065
     Dates: start: 20130702, end: 20130723
  3. BENDAMUSTINE HYDROCHLORIDE [Suspect]
     Active Substance: BENDAMUSTINE HYDROCHLORIDE
     Dosage: 60 MG/M2, TREATMENT LINE 4 CYCLE 3
     Route: 042
     Dates: start: 20131218, end: 20131219
  4. ZOMETA [Concomitant]
     Active Substance: ZOLEDRONIC ACID
     Indication: PRODUCT USED FOR UNKNOWN INDICATION
     Dosage: UNK UNK, UNKNOWN FREQ.
     Route: 065
     Dates: start: 201402, end: 201402
  5. NEORECORMON [Concomitant]
     Active Substance: ERYTHROPOIETIN
     Indication: PRODUCT USED FOR UNKNOWN INDICATION
     Dosage: UNK UNK, UNKNOWN FREQ.
     Route: 065
     Dates: start: 20131024
  6. BENDAMUSTINE HYDROCHLORIDE [Suspect]
     Active Substance: BENDAMUSTINE HYDROCHLORIDE
     Indication: PLASMA CELL MYELOMA
     Dosage: UNK UNK, TREATMENT LINE 4 CYCLE 1
     Route: 042
     Dates: start: 20130926, end: 20131024
  7. POMALIDOMIDE [Suspect]
     Active Substance: POMALIDOMIDE
     Indication: PLASMA CELL MYELOMA
     Dosage: 2 MG, TREATMENT LINE 5, CYCLE 1
     Route: 065
     Dates: start: 20140115
  8. PREDNISONE. [Suspect]
     Active Substance: PREDNISONE
     Indication: PLASMA CELL MYELOMA
     Dosage: UNK UNK, TREATMENT LINE 4 CYCLE 1.
     Route: 065
     Dates: start: 20130926, end: 20131024
  9. BENDAMUSTINE HYDROCHLORIDE [Suspect]
     Active Substance: BENDAMUSTINE HYDROCHLORIDE
     Dosage: UNK UNK, TREATMENT LINE 4 CYCLE 2
     Route: 042
     Dates: start: 20131120, end: 20131217
  10. PREDNISONE. [Suspect]
     Active Substance: PREDNISONE
     Dosage: UNK UNK, TREATMENT LINE 4 CYCLE 3
     Route: 065
     Dates: start: 20131218, end: 20131219
  11. DEXAMETHASONE. [Suspect]
     Active Substance: DEXAMETHASONE
     Dosage: 20 MG,  TREATMENT LINE 5, CYCLE 1
     Route: 065
     Dates: start: 20140115
  12. PREDNISONE. [Suspect]
     Active Substance: PREDNISONE
     Dosage: UNK UNK, TREATMENT LINE 4 CYCLE 2
     Route: 065
     Dates: start: 20131120, end: 20131217

REACTIONS (1)
  - Hyperthermia [Recovered/Resolved]

NARRATIVE: CASE EVENT DATE: 20140223
